FAERS Safety Report 22127389 (Version 1)
Quarter: 2023Q1

REPORT INFORMATION
  Report Type: Spontaneous
  Country: US (occurrence: US)
  Receive Date: 20230322
  Receipt Date: 20230322
  Transmission Date: 20230417
  Serious: No
  Sender: FDA-Public Use
  Company Number: US-APIL-2308752US

PATIENT
  Sex: Male

DRUGS (1)
  1. ESCITALOPRAM OXALATE [Suspect]
     Active Substance: ESCITALOPRAM OXALATE
     Indication: Major depression
     Dosage: UNK UNK, QHS
     Route: 048
     Dates: end: 20230316

REACTIONS (3)
  - Feeling abnormal [Unknown]
  - Muscle spasms [Unknown]
  - Insomnia [Unknown]
